FAERS Safety Report 18783680 (Version 1)
Quarter: 2021Q1

REPORT INFORMATION
  Report Type: Spontaneous
  Country: US (occurrence: US)
  Receive Date: 20210125
  Receipt Date: 20210125
  Transmission Date: 20210419
  Serious: Yes (Other)
  Sender: FDA-Public Use
  Company Number: NVSC2021US012678

PATIENT
  Sex: Male

DRUGS (1)
  1. ZOLGENSMA [Suspect]
     Active Substance: ONASEMNOGENE ABEPARVOVEC-XIOI
     Indication: SPINAL MUSCULAR ATROPHY
     Dosage: UNK
     Route: 042
     Dates: start: 20190827

REACTIONS (6)
  - Ear infection [Unknown]
  - Illness [Unknown]
  - Nasopharyngitis [Unknown]
  - Sinusitis [Unknown]
  - Viral infection [Unknown]
  - Choking [Unknown]
